FAERS Safety Report 4955484-7 (Version None)
Quarter: 2006Q1

REPORT INFORMATION
  Report Type: 
  Country: None (occurrence: None)
  Receive Date: 20060328
  Receipt Date: 20060307
  Transmission Date: 20060701
  Serious: Yes (Other)
  Sender: FDA-Public Use
  Company Number: JP-JPN-A200600876

PATIENT
  Sex: Female

DRUGS (1)
  1. VALTREX [Suspect]
     Indication: HERPES ZOSTER
     Dosage: 1000MG PER DAY
     Route: 048
     Dates: start: 20060304, end: 20060307

REACTIONS (4)
  - DIZZINESS [None]
  - DYSARTHRIA [None]
  - HALLUCINATION [None]
  - HALLUCINATION, AUDITORY [None]
